FAERS Safety Report 8450370-2 (Version None)
Quarter: 2012Q2

REPORT INFORMATION
  Report Type: 
  Country: None (occurrence: None)
  Receive Date: 20120620
  Receipt Date: 20120615
  Transmission Date: 20120825
  Serious: Yes (Other)
  Sender: FDA-Public Use
  Company Number: US-PFIZER INC-2012145123

PATIENT
  Sex: Female
  Weight: 83.447 kg

DRUGS (2)
  1. PRISTIQ [Suspect]
     Indication: ANXIETY
     Dosage: 50 MG, ONCE
     Dates: start: 20120101, end: 20120101
  2. PRISTIQ [Suspect]
     Dosage: 50 MG, ONCE
     Dates: start: 20120615

REACTIONS (1)
  - DYSPNOEA [None]
